FAERS Safety Report 15630281 (Version 1)
Quarter: 2018Q4

REPORT INFORMATION
  Report Type: Spontaneous
  Country: US (occurrence: US)
  Receive Date: 20181117
  Receipt Date: 20181117
  Transmission Date: 20190205
  Serious: Yes (Other)
  Sender: FDA-Public Use
  Company Number: None

PATIENT
  Age: 58 Year
  Sex: Female
  Weight: 154.8 kg

DRUGS (2)
  1. LEVOTHYROXINE 150MCG [Suspect]
     Active Substance: LEVOTHYROXINE
     Indication: THYROID DISORDER
     Dosage: ?          OTHER STRENGTH:MCG;QUANTITY:90 TABLET(S);?
     Route: 048
     Dates: start: 20160510
  2. CALCIUM 600 [Suspect]
     Active Substance: CALCIUM
     Indication: OSTEOPOROSIS
     Dosage: ?          QUANTITY:1 TABLET(S);?
     Route: 048
     Dates: start: 20180510, end: 20180530

REACTIONS (1)
  - Aggression [None]

NARRATIVE: CASE EVENT DATE: 20180501
